FAERS Safety Report 9385831 (Version 1)
Quarter: 2013Q3

REPORT INFORMATION
  Report Type: Spontaneous
  Country: AU (occurrence: AU)
  Receive Date: 20130705
  Receipt Date: 20130705
  Transmission Date: 20140515
  Serious: Yes (Death)
  Sender: FDA-Public Use
  Company Number: AU-ASTRAZENECA-2013SE50476

PATIENT
  Age: 53 Year
  Sex: Male

DRUGS (1)
  1. CAPRELSA [Suspect]
     Indication: MEDULLARY THYROID CANCER
     Route: 048

REACTIONS (2)
  - Disease progression [Fatal]
  - Metastases to liver [Fatal]
